FAERS Safety Report 4317504-2 (Version None)
Quarter: 2004Q1

REPORT INFORMATION
  Report Type: 
  Country: None (occurrence: None)
  Receive Date: 20040312
  Receipt Date: 20040305
  Transmission Date: 20041129
  Serious: Yes (Hospitalization)
  Sender: FDA-Public Use
  Company Number: CIP04000453

PATIENT
  Age: 74 Year
  Sex: Female

DRUGS (3)
  1. ACTONEL [Suspect]
     Dosage: 5 MG DAILY, ORAL
     Route: 048
     Dates: start: 20020101
  2. ACTONEL [Suspect]
     Dosage: 35 MG ONCE WEEKLY, ORAL
     Route: 048
  3. DRUG NOS [Concomitant]

REACTIONS (6)
  - DIARRHOEA [None]
  - ELECTROCARDIOGRAM ABNORMAL [None]
  - HEPATIC ENZYME INCREASED [None]
  - HEPATIC FAILURE [None]
  - NAUSEA [None]
  - VIRAL INFECTION [None]
